FAERS Safety Report 22013030 (Version 2)
Quarter: 2023Q1

REPORT INFORMATION
  Report Type: Spontaneous
  Country: LU (occurrence: LU)
  Receive Date: 20230220
  Receipt Date: 20230228
  Transmission Date: 20230417
  Serious: Yes (Other)
  Sender: FDA-Public Use
  Company Number: LU-ORGANON-O2302LUX001584

PATIENT
  Age: 42 Year
  Sex: Female

DRUGS (2)
  1. ETONOGESTREL [Suspect]
     Active Substance: ETONOGESTREL
     Dosage: 1 IMPLANT
     Route: 059
     Dates: start: 2020
  2. ETONOGESTREL [Suspect]
     Active Substance: ETONOGESTREL
     Dosage: 1 IMPLANT, IN THE DISTAL PART
     Route: 059

REACTIONS (4)
  - Device dislocation [Not Recovered/Not Resolved]
  - Incorrect product administration duration [Unknown]
  - Device use error [Unknown]
  - Overdose [Unknown]

NARRATIVE: CASE EVENT DATE: 20230101
